FAERS Safety Report 5170615-4 (Version None)
Quarter: 2006Q4

REPORT INFORMATION
  Report Type: 
  Country: None (occurrence: None)
  Receive Date: 20061205
  Receipt Date: 20061120
  Transmission Date: 20070319
  Serious: Yes (Other)
  Sender: FDA-Public Use
  Company Number: 2006145308

PATIENT

DRUGS (2)
  1. VORICONAZOLE         (VORICONAZOLE) [Suspect]
     Indication: BRONCHOPULMONARY ASPERGILLOSIS
     Dosage: 2 IN 1 D), INTRAVENOUS
     Route: 042
  2. CASPOGUNGIN                    (CASPOFUNGIN) [Concomitant]

REACTIONS (1)
  - FACIAL PALSY [None]
